FAERS Safety Report 7938325-5 (Version None)
Quarter: 2011Q4

REPORT INFORMATION
  Report Type: 
  Country: None (occurrence: None)
  Receive Date: 20111123
  Receipt Date: 20111123
  Transmission Date: 20120403
  Serious: Yes (Hospitalization)
  Sender: FDA-Public Use
  Company Number: HU-ABBOTT-11P-076-0873943-00

PATIENT
  Age: 33 Year
  Sex: Male

DRUGS (2)
  1. ETANERCEPT [Concomitant]
     Indication: ANKYLOSING SPONDYLITIS
  2. ADALIMUMAB [Suspect]
     Indication: ANKYLOSING SPONDYLITIS
     Route: 058
     Dates: start: 20070501

REACTIONS (4)
  - DYSPNOEA [None]
  - PYREXIA [None]
  - SARCOIDOSIS [None]
  - COUGH [None]
